FAERS Safety Report 6683428-9 (Version None)
Quarter: 2010Q2

REPORT INFORMATION
  Report Type: 
  Country: None (occurrence: None)
  Receive Date: 20100415
  Receipt Date: 20100401
  Transmission Date: 20101027
  Serious: Yes (Other)
  Sender: FDA-Public Use
  Company Number: US-ELI_LILLY_AND_COMPANY-US201002005863

PATIENT
  Sex: Female

DRUGS (2)
  1. FORTEO [Suspect]
     Indication: OSTEOPOROSIS
     Dosage: 20 UG, DAILY (1/D)
     Dates: start: 20090701
  2. OXYBUTYNIN CHLORIDE [Concomitant]
     Dosage: 5 MG, UNKNOWN

REACTIONS (3)
  - BREAST CANCER [None]
  - ILL-DEFINED DISORDER [None]
  - MAMMOGRAM ABNORMAL [None]
